FAERS Safety Report 10007933 (Version 2)
Quarter: 2014Q1

REPORT INFORMATION
  Report Type: Report from Study
  Country: US (occurrence: US)
  Receive Date: 20140313
  Receipt Date: 20140313
  Transmission Date: 20141002
  Serious: Yes (Hospitalization)
  Sender: FDA-Public Use
  Company Number: US-IPSEN BIOPHARMACEUTICALS, INC.-2012-7841

PATIENT
  Sex: Male
  Weight: 138 kg

DRUGS (2)
  1. SOMATULINE DEPOT INJECTION (90MG) [Suspect]
     Indication: ACROMEGALY
     Dosage: 90 MG
     Route: 058
     Dates: start: 201103
  2. SOMATULINE DEPOT INJECTION (90MG) [Suspect]
     Dosage: 90 MG
     Route: 058

REACTIONS (2)
  - Gallbladder disorder [Recovered/Resolved]
  - Condition aggravated [Recovered/Resolved]
